FAERS Safety Report 16426417 (Version 1)
Quarter: 2019Q2

REPORT INFORMATION
  Report Type: Spontaneous
  Country: GB (occurrence: GB)
  Receive Date: 20190613
  Receipt Date: 20190613
  Transmission Date: 20190711
  Serious: Yes (Other)
  Sender: FDA-Public Use
  Company Number: GB-TEVA-2019-GB-1061633

PATIENT
  Age: 65 Year
  Sex: Female
  Weight: 92.07 kg

DRUGS (2)
  1. TURMERIC [Concomitant]
     Active Substance: HERBALS\TURMERIC
  2. NAPROXEN. [Suspect]
     Active Substance: NAPROXEN
     Indication: OSTEOARTHRITIS
     Dosage: 1000MG
     Route: 048
     Dates: start: 20170101, end: 20190502

REACTIONS (1)
  - Muscle spasms [Recovering/Resolving]
